FAERS Safety Report 10027683 (Version 2)
Quarter: 2014Q1

REPORT INFORMATION
  Report Type: Spontaneous
  Country: US (occurrence: US)
  Receive Date: 20140321
  Receipt Date: 20140321
  Transmission Date: 20141002
  Serious: Yes (Death)
  Sender: FDA-Public Use
  Company Number: US-MALLINCKRODT-T201304202

PATIENT
  Age: 56 Year
  Sex: Male

DRUGS (4)
  1. METHADOSE [Suspect]
     Indication: BACK PAIN
     Dosage: UNK
     Route: 048
  2. BUTRANS /00444001/ [Suspect]
     Dosage: UNK
  3. ALL OTHER THERAPEUTIC PRODUCTS [Suspect]
     Dosage: UNK
  4. DILANTIN                           /00017401/ [Concomitant]
     Indication: CONVULSION
     Dosage: UNK

REACTIONS (1)
  - Intentional overdose [Fatal]
